FAERS Safety Report 17534850 (Version 6)
Quarter: 2024Q3

REPORT INFORMATION
  Report Type: Spontaneous
  Country: US (occurrence: US)
  Receive Date: 20200312
  Receipt Date: 20240716
  Transmission Date: 20241017
  Serious: No
  Sender: SANOFI AVENTIS
  Company Number: US-SA-2020SA064254

PATIENT
  Age: 34 Year
  Sex: Female
  Weight: 149.96 kg

DRUGS (5)
  1. FABRAZYME [Suspect]
     Active Substance: AGALSIDASE BETA
     Indication: Fabry^s disease
     Dosage: 150 MG, QOW
     Route: 041
     Dates: start: 20190208
  2. FABRAZYME [Suspect]
     Active Substance: AGALSIDASE BETA
     Dosage: 80 MG, QOW
     Route: 041
  3. FABRAZYME [Suspect]
     Active Substance: AGALSIDASE BETA
     Dosage: 150 MG, QOW
     Route: 041
     Dates: start: 201908
  4. FABRAZYME [Suspect]
     Active Substance: AGALSIDASE BETA
     Dosage: 75 MG, QW
     Route: 042
     Dates: start: 201908
  5. FABRAZYME [Suspect]
     Active Substance: AGALSIDASE BETA
     Dosage: 160 MG, QOW
     Route: 058

REACTIONS (4)
  - Weight decreased [Unknown]
  - Weight increased [Unknown]
  - Off label use [Unknown]
  - Inappropriate schedule of product administration [Unknown]

NARRATIVE: CASE EVENT DATE: 20190208
